FAERS Safety Report 20213485 (Version 3)
Quarter: 2022Q1

REPORT INFORMATION
  Report Type: Report from Study
  Country: BR (occurrence: BR)
  Receive Date: 20211221
  Receipt Date: 20220216
  Transmission Date: 20220423
  Serious: Yes (Death, Hospitalization, Other)
  Sender: FDA-Public Use
  Company Number: BR-BAYER-2021A270964

PATIENT
  Age: 71 Year
  Sex: Female

DRUGS (23)
  1. NEXAVAR [Suspect]
     Active Substance: SORAFENIB
     Indication: Hepatocellular carcinoma
     Dosage: 4 DF, QD
     Dates: start: 202107
  2. NEXAVAR [Suspect]
     Active Substance: SORAFENIB
     Indication: Hepatocellular carcinoma
     Dosage: 3 DF, QD
  3. GABAPENTIN [Concomitant]
     Active Substance: GABAPENTIN
     Dosage: UNK
     Dates: start: 2006
  4. LAMOTRIGINE [Concomitant]
     Active Substance: LAMOTRIGINE
     Dosage: UNK
     Dates: start: 2006, end: 20211202
  5. SERTRALINE [Concomitant]
     Active Substance: SERTRALINE HYDROCHLORIDE
     Dosage: UNK
     Dates: start: 2006, end: 20211203
  6. QUETIAPINE [Concomitant]
     Active Substance: QUETIAPINE
     Dosage: UNK
     Dates: start: 2006
  7. METFORMIN [Concomitant]
     Active Substance: METFORMIN HYDROCHLORIDE
     Indication: Diabetes mellitus
     Dosage: UNK
     Dates: start: 2000, end: 20211203
  8. INSULIN BEEF [Concomitant]
     Active Substance: INSULIN BEEF
     Indication: Diabetes mellitus
     Dosage: UNK
     Dates: start: 2000
  9. INSULIN BEEF [Concomitant]
     Active Substance: INSULIN BEEF
     Indication: Diabetes mellitus
     Dosage: UNK
     Dates: start: 2000
  10. ATENOLOL [Concomitant]
     Active Substance: ATENOLOL
     Indication: Hypertension
     Dosage: UNK
     Dates: start: 2000
  11. ENALAPRIL [Concomitant]
     Active Substance: ENALAPRIL
     Indication: Hypertension
     Dosage: UNK
     Dates: start: 2000
  12. GLICLAZIDE [Concomitant]
     Active Substance: GLICLAZIDE
     Dosage: UNK
  13. SIMVASTATIN [Concomitant]
     Active Substance: SIMVASTATIN
     Indication: Hypercholesterolaemia
     Dosage: UNK
  14. METAMIZOLE SODIUM [Concomitant]
     Active Substance: METAMIZOLE SODIUM
     Indication: Pain
     Dosage: UNK
     Dates: start: 2021
  15. METHADONE HYDROCHLORIDE [Concomitant]
     Active Substance: METHADONE HYDROCHLORIDE
     Indication: Pain
     Dosage: UNK
     Dates: start: 2021
  16. DIGEPLUS [CELLULASE;DEHYDROCHOLIC ACID;DIMETICONE;METOCLOPRAMIDE H [Concomitant]
     Dosage: UNK
     Dates: start: 2021
  17. PANTOPRAZOLE [Concomitant]
     Active Substance: PANTOPRAZOLE
  18. LOPERAMIDE [Concomitant]
     Active Substance: LOPERAMIDE
     Indication: Diarrhoea
     Dosage: UNK
     Dates: start: 2021
  19. RAPILAX [SODIUM PICOSULFATE] [Concomitant]
     Indication: Constipation
     Dosage: UNK
     Dates: start: 2021
  20. GLUCERNA [Concomitant]
     Active Substance: AMINO ACIDS\DEXTROSE\ELECTROLYTES NOS\SOYBEAN OIL\VITAMINS
     Indication: Nutritional supplementation
     Dosage: UNK
     Dates: start: 20211203
  21. DONEPEZIL HYDROCHLORIDE [Concomitant]
     Active Substance: DONEPEZIL HYDROCHLORIDE
     Indication: Dementia Alzheimer^s type
     Dosage: UNK
     Dates: start: 20211209, end: 20211214
  22. APEVITIN BC [ASCORBIC ACID;CYPROHEPTADINE HYDROCHLORIDE;NICOTINAMI [Concomitant]
     Indication: Decreased appetite
     Dosage: UNK
     Dates: start: 20211203
  23. VITERGAN ZINCO [Concomitant]
     Dosage: UNK
     Dates: start: 20211203

REACTIONS (13)
  - Hepatocellular carcinoma [Fatal]
  - Enzyme abnormality [Fatal]
  - Renal failure [Fatal]
  - Pneumonia [Fatal]
  - Pneumonia [Not Recovered/Not Resolved]
  - Cholangitis acute [Not Recovered/Not Resolved]
  - Lethargy [Not Recovered/Not Resolved]
  - Eating disorder [Not Recovered/Not Resolved]
  - Mobility decreased [None]
  - Apathy [None]
  - Pyrexia [None]
  - Dementia Alzheimer^s type [Not Recovered/Not Resolved]
  - Dermatitis diaper [None]

NARRATIVE: CASE EVENT DATE: 20211210
